FAERS Safety Report 16573982 (Version 1)
Quarter: 2019Q3

REPORT INFORMATION
  Report Type: Spontaneous
  Country: CN (occurrence: CN)
  Receive Date: 20190715
  Receipt Date: 20190715
  Transmission Date: 20191004
  Serious: Yes (Other)
  Sender: FDA-Public Use
  Company Number: CN-FRESENIUS KABI-FK201907674

PATIENT
  Age: 60 Year
  Sex: Female
  Weight: 57.5 kg

DRUGS (2)
  1. CEFODIZIME [Suspect]
     Active Substance: CEFODIZIME SODIUM
     Indication: EVIDENCE BASED TREATMENT
     Route: 065
  2. VANCOMYCIN (MANUFACTURER UNKNOWN) [Suspect]
     Active Substance: VANCOMYCIN
     Indication: EVIDENCE BASED TREATMENT
     Route: 065
     Dates: start: 20151018, end: 20151022

REACTIONS (1)
  - Acute kidney injury [Recovering/Resolving]

NARRATIVE: CASE EVENT DATE: 20151022
